FAERS Safety Report 22393881 (Version 1)
Quarter: 2023Q2

REPORT INFORMATION
  Report Type: Spontaneous
  Country: CN (occurrence: CN)
  Receive Date: 20230601
  Receipt Date: 20230601
  Transmission Date: 20230721
  Serious: Yes (Other)
  Sender: FDA-Public Use
  Company Number: CN-PFIZER INC-PV202300096373

PATIENT
  Age: 10 Year
  Sex: Male
  Weight: 37 kg

DRUGS (2)
  1. CYTARABINE [Suspect]
     Active Substance: CYTARABINE
     Indication: Chemotherapy
     Dosage: 3.69 G, 2X/DAY
     Route: 041
     Dates: start: 20230517, end: 20230519
  2. CYTARABINE [Suspect]
     Active Substance: CYTARABINE
     Indication: Neoplasm
     Dosage: 3.6 G, 2X/DAY
     Route: 041
     Dates: start: 20230524, end: 20230526

REACTIONS (8)
  - Pyrexia [Recovered/Resolved]
  - Erythema [Recovering/Resolving]
  - Papule [Recovering/Resolving]
  - Pruritus [Recovering/Resolving]
  - C-reactive protein increased [Unknown]
  - Neutrophil percentage increased [Unknown]
  - Interleukin level increased [Unknown]
  - Procalcitonin increased [Unknown]

NARRATIVE: CASE EVENT DATE: 20230525
